FAERS Safety Report 17682011 (Version 1)
Quarter: 2020Q2

REPORT INFORMATION
  Report Type: Spontaneous
  Country: IT (occurrence: IT)
  Receive Date: 20200418
  Receipt Date: 20200418
  Transmission Date: 20200714
  Serious: Yes (Other)
  Sender: FDA-Public Use
  Company Number: IT-AUROBINDO-AUR-APL-2020-017788

PATIENT
  Age: 36 Year
  Sex: Female

DRUGS (2)
  1. LINEZOLID SOLUTION FOR INFUSION [Suspect]
     Active Substance: LINEZOLID
     Indication: ENCEPHALITIS
     Dosage: 600 MILLIGRAM, 3 TIMES A DAY
     Route: 042
     Dates: start: 2018
  2. LINEZOLID SOLUTION FOR INFUSION [Suspect]
     Active Substance: LINEZOLID
     Dosage: 600 MILLIGRAM, TWO TIMES A DAY
     Route: 042
     Dates: start: 201811

REACTIONS (2)
  - Thrombocytopenia [Unknown]
  - Drug level increased [Recovered/Resolved]

NARRATIVE: CASE EVENT DATE: 2018
